FAERS Safety Report 8542275-3 (Version None)
Quarter: 2012Q3

REPORT INFORMATION
  Report Type: 
  Country: None (occurrence: None)
  Receive Date: 20120726
  Receipt Date: 20120723
  Transmission Date: 20120928
  Serious: No
  Sender: FDA-Public Use
  Company Number: US-PFIZER INC-2012177664

PATIENT
  Sex: Male

DRUGS (2)
  1. DILANTIN [Suspect]
     Dosage: 100 MG, UNK
  2. DILANTIN [Suspect]
     Dosage: 50 MG, UNK

REACTIONS (2)
  - INCORRECT DOSE ADMINISTERED [None]
  - DRUG LEVEL INCREASED [None]
